FAERS Safety Report 7954305-8 (Version None)
Quarter: 2011Q4

REPORT INFORMATION
  Report Type: 
  Country: None (occurrence: None)
  Receive Date: 20111202
  Receipt Date: 20111129
  Transmission Date: 20120403
  Serious: Yes (Death, Life-Threatening, Hospitalization)
  Sender: FDA-Public Use
  Company Number: JP-BAYER-2011-108172

PATIENT
  Age: 60 Year
  Sex: Male
  Weight: 53 kg

DRUGS (6)
  1. ADONA [Suspect]
     Indication: LUNG CANCER METASTATIC
  2. ADONA [Suspect]
     Indication: HAEMATEMESIS
     Dosage: DAILY DOSE 90 MG
     Route: 048
     Dates: start: 20111013, end: 20111019
  3. SUMIFERON [Concomitant]
     Dosage: DAILY DOSE 600 MG
     Route: 058
     Dates: start: 20110725, end: 20111006
  4. NEXAVAR [Suspect]
     Indication: RENAL CELL CARCINOMA
     Dosage: 400 MG, BID
     Route: 048
     Dates: start: 20111014, end: 20111020
  5. DEXTROMETHORPHAN HYDROBROMIDE [Suspect]
     Indication: COUGH
     Dosage: DAILY DOSE 45 MG
     Route: 048
     Dates: start: 20111007, end: 20111020
  6. MUCODYNE [Suspect]
     Indication: COUGH
     Dosage: DAILY DOSE 750 MG
     Route: 048
     Dates: start: 20111007, end: 20111020

REACTIONS (6)
  - CEREBRAL HAEMORRHAGE [None]
  - MALAISE [None]
  - HEPATITIS FULMINANT [None]
  - BLOOD AMYLASE INCREASED [None]
  - HEPATIC FAILURE [None]
  - DECREASED APPETITE [None]
